FAERS Safety Report 20768682 (Version 2)
Quarter: 2022Q2

REPORT INFORMATION
  Report Type: Report from Study
  Country: EG (occurrence: EG)
  Receive Date: 20220429
  Receipt Date: 20220510
  Transmission Date: 20220720
  Serious: Yes (Death)
  Sender: FDA-Public Use
  Company Number: EG-NOVARTISPH-NVSC2022EG098911

PATIENT
  Sex: Female

DRUGS (1)
  1. COSENTYX [Suspect]
     Active Substance: SECUKINUMAB
     Indication: Psoriasis
     Dosage: 150 MG, QMO (2 YEARS AND HALF)
     Route: 058

REACTIONS (2)
  - Death [Fatal]
  - Incorrect dose administered [Unknown]
